FAERS Safety Report 17109381 (Version 1)
Quarter: 2019Q4

REPORT INFORMATION
  Report Type: Spontaneous
  Country: US (occurrence: US)
  Receive Date: 20191107
  Receipt Date: 20191107
  Transmission Date: 20200122
  Serious: Yes (Hospitalization)
  Sender: FDA-Public Use
  Company Number: None

PATIENT
  Age: 63 Year
  Sex: Male
  Weight: 77.11 kg

DRUGS (5)
  1. NIFEDIPINE ER 30MG TABLET [Suspect]
     Active Substance: NIFEDIPINE
     Indication: HYPERTENSION
     Dosage: ?          QUANTITY:1 DF DOSAGE FORM;?
     Route: 048
  2. PERCOCET [Concomitant]
     Active Substance: ACETAMINOPHEN\OXYCODONE HYDROCHLORIDE
  3. TRAZODONE [Concomitant]
     Active Substance: TRAZODONE HYDROCHLORIDE
  4. MELOXICAM. [Concomitant]
     Active Substance: MELOXICAM
  5. IBUPROFEN. [Concomitant]
     Active Substance: IBUPROFEN

REACTIONS (4)
  - Renal failure [None]
  - Dehydration [None]
  - Pain [None]
  - Muscle spasms [None]

NARRATIVE: CASE EVENT DATE: 201508
